FAERS Safety Report 9125938 (Version 2)
Quarter: 2013Q1

REPORT INFORMATION
  Report Type: Report from Study
  Country: US (occurrence: US)
  Receive Date: 20130117
  Receipt Date: 20130321
  Transmission Date: 20140127
  Serious: Yes (Hospitalization, Other)
  Sender: FDA-Public Use
  Company Number: US-ABBOTT-13P-163-1035040-00

PATIENT
  Sex: Female
  Weight: 69.01 kg

DRUGS (5)
  1. HUMIRA [Suspect]
     Indication: CROHN^S DISEASE
     Route: 058
     Dates: start: 20120210
  2. GENERIC PREVACID [Concomitant]
     Indication: GASTROOESOPHAGEAL REFLUX DISEASE
     Dosage: DAILY
  3. ATENOLOL [Concomitant]
     Indication: HYPERTENSION
     Dosage: DAILY
  4. XANAX [Concomitant]
     Indication: ANXIETY
  5. VICODIN [Concomitant]
     Indication: PAIN
     Dosage: 10/500 1 TABLET UP TO THREE TIMES DAILY

REACTIONS (4)
  - Intestinal stenosis [Recovering/Resolving]
  - Intestinal fistula [Recovering/Resolving]
  - Gastrointestinal inflammation [Recovering/Resolving]
  - Drug ineffective [Unknown]
